FAERS Safety Report 8505660 (Version 4)
Quarter: 2013Q4

REPORT INFORMATION
  Report Type: Spontaneous
  Country: FR (occurrence: FR)
  Receive Date: 20120412
  Receipt Date: 20131212
  Transmission Date: 20140711
  Serious: Yes (Hospitalization, Other)
  Sender: FDA-Public Use
  Company Number: PHHY2012FR029732

PATIENT
  Age: 52 Year
  Sex: Male

DRUGS (6)
  1. RASILEZ HCT [Suspect]
     Indication: HYPERTENSION
     Dosage: 1 DF, (150 MG ALI/ 12.5 MG HCT)
     Route: 048
     Dates: end: 20120121
  2. ANAFRANIL [Suspect]
     Dosage: 37.5 MG, QD
     Dates: end: 20120121
  3. ALPRAZOLAM [Suspect]
     Indication: MENTAL DISORDER
     Dosage: 0.25 MG, TID
     Dates: end: 20120121
  4. SEROPLEX [Suspect]
     Indication: DEPRESSION
     Dosage: 20 MG, QD
     Dates: end: 201201
  5. ZYPREXA [Suspect]
     Indication: DEPRESSION
     Dosage: 5 MG, QD
     Dates: start: 20111123, end: 20120105
  6. PRAZEPAM [Concomitant]

REACTIONS (11)
  - Hepatic failure [Recovering/Resolving]
  - Hepatic enzyme increased [Recovering/Resolving]
  - Ascites [Unknown]
  - Jaundice [Recovered/Resolved]
  - Condition aggravated [Recovered/Resolved]
  - Hepatomegaly [Unknown]
  - Liver injury [Unknown]
  - Hepatic cirrhosis [Unknown]
  - Alcoholic liver disease [Unknown]
  - Hepatocellular injury [Recovering/Resolving]
  - Gynaecomastia [Unknown]
